FAERS Safety Report 23218682 (Version 1)
Quarter: 2023Q4

REPORT INFORMATION
  Report Type: Spontaneous
  Country: US (occurrence: None)
  Receive Date: 20231122
  Receipt Date: 20231122
  Transmission Date: 20240110
  Serious: No
  Sender: FDA-Public Use
  Company Number: US-Noden Pharma DAC-NOD202306-000007

PATIENT

DRUGS (1)
  1. ALISKIREN [Suspect]
     Active Substance: ALISKIREN
     Indication: Product used for unknown indication

REACTIONS (3)
  - Therapeutic product effect decreased [Unknown]
  - Product blister packaging issue [Unknown]
  - Product packaging quantity issue [Unknown]
